FAERS Safety Report 7263487-5 (Version None)
Quarter: 2011Q1

REPORT INFORMATION
  Report Type: 
  Country: None (occurrence: None)
  Receive Date: 20110130
  Receipt Date: 20101215
  Transmission Date: 20110831
  Serious: No
  Sender: FDA-Public Use
  Company Number: US-ABBOTT-10P-163-0691720-00

PATIENT
  Age: 20 Year
  Sex: Female

DRUGS (7)
  1. SEASONIQUE [Concomitant]
     Indication: MENSTRUAL DISORDER
  2. HUMIRA [Suspect]
     Indication: RHEUMATOID ARTHRITIS
     Dates: start: 20101001
  3. VOLTAREN [Concomitant]
     Indication: ARTHRALGIA
  4. SEASONIQUE [Concomitant]
     Indication: DYSMENORRHOEA
     Dosage: 3 MONTH SUPPLY OFF ONE WEEK
  5. VIT D3 [Concomitant]
     Indication: VITAMIN D DEFICIENCY
  6. GLUCOSAMINE [Concomitant]
     Indication: PRODUCT USED FOR UNKNOWN INDICATION
  7. LEVOTHYROXINE SODIUM [Concomitant]
     Indication: HYPOTHYROIDISM

REACTIONS (4)
  - OROPHARYNGEAL PAIN [None]
  - COUGH [None]
  - PYREXIA [None]
  - RHINORRHOEA [None]
